FAERS Safety Report 22295673 (Version 1)
Quarter: 2023Q2

REPORT INFORMATION
  Report Type: Spontaneous
  Country: US (occurrence: None)
  Receive Date: 20230505
  Receipt Date: 20230505
  Transmission Date: 20230721
  Serious: No
  Sender: FDA-Public Use
  Company Number: None

PATIENT
  Sex: Female

DRUGS (2)
  1. STELARA [Suspect]
     Active Substance: USTEKINUMAB
     Indication: Arthritis
     Dosage: FREQUENCY : MONTHLY;?
     Route: 058
     Dates: start: 202112, end: 20230430
  2. STELARA [Suspect]
     Active Substance: USTEKINUMAB
     Indication: Crohn^s disease

REACTIONS (5)
  - Drug ineffective [None]
  - Arthralgia [None]
  - Flatulence [None]
  - Abdominal pain [None]
  - Inflammation [None]
